FAERS Safety Report 15450418 (Version 1)
Quarter: 2018Q4

REPORT INFORMATION
  Report Type: Spontaneous
  Country: US (occurrence: US)
  Receive Date: 20181001
  Receipt Date: 20181001
  Transmission Date: 20190204
  Serious: Yes (Life-Threatening, Hospitalization)
  Sender: FDA-Public Use
  Company Number: US-HORIZON-KRY-0309-2018

PATIENT
  Age: 59 Year
  Sex: Male

DRUGS (6)
  1. MULTIVITAMIN [Concomitant]
     Active Substance: VITAMINS
  2. PEGLOTICASE [Suspect]
     Active Substance: PEGLOTICASE
     Indication: GOUT
     Dosage: INTRAVENOUS PEGLOTICASE 8 MG
     Route: 041
  3. LISINOPRIL. [Concomitant]
     Active Substance: LISINOPRIL
  4. ALLOPURINOL. [Concomitant]
     Active Substance: ALLOPURINOL
  5. CELECOXIB. [Concomitant]
     Active Substance: CELECOXIB
  6. COLCHICINE. [Concomitant]
     Active Substance: COLCHICINE

REACTIONS (5)
  - Haemolysis [Not Recovered/Not Resolved]
  - Haemodialysis [Unknown]
  - Hyperkalaemia [Not Recovered/Not Resolved]
  - Contraindicated product administered [Unknown]
  - Methaemoglobinaemia [Unknown]
